FAERS Safety Report 18290072 (Version 2)
Quarter: 2021Q4

REPORT INFORMATION
  Report Type: Spontaneous
  Country: JP (occurrence: JP)
  Receive Date: 20200921
  Receipt Date: 20211025
  Transmission Date: 20220303
  Serious: Yes (Other)
  Sender: FDA-Public Use
  Company Number: JP-GILEAD-2020-0495575

PATIENT
  Age: 64 Year
  Sex: Female

DRUGS (8)
  1. EPCLUSA [Suspect]
     Active Substance: SOFOSBUVIR\VELPATASVIR
     Indication: Hepatic cirrhosis
     Dosage: UNK
     Route: 048
  2. EPCLUSA [Suspect]
     Active Substance: SOFOSBUVIR\VELPATASVIR
     Indication: Hepatitis C
  3. FUROSEMIDE [Concomitant]
     Active Substance: FUROSEMIDE
     Dosage: 20 MG
  4. FUROSEMIDE [Concomitant]
     Active Substance: FUROSEMIDE
     Dosage: 40 MG
  5. SPIRONOLACTONE [Concomitant]
     Active Substance: SPIRONOLACTONE
     Dosage: 50 MG
  6. TOLVAPTAN [Concomitant]
     Active Substance: TOLVAPTAN
     Dosage: 3.75 MG
  7. RIFAXIMIN [Concomitant]
     Active Substance: RIFAXIMIN
     Dosage: 1200 MG
  8. LACTULOSE [Concomitant]
     Active Substance: LACTULOSE

REACTIONS (8)
  - Oedema [Recovering/Resolving]
  - Renal impairment [Unknown]
  - Ascites [Recovering/Resolving]
  - Portal hypertension [Unknown]
  - Ascites [Recovering/Resolving]
  - Varices oesophageal [Unknown]
  - Ammonia increased [Recovering/Resolving]
  - Platelet count decreased [Unknown]
